FAERS Safety Report 7372112-4 (Version None)
Quarter: 2011Q1

REPORT INFORMATION
  Report Type: 
  Country: None (occurrence: None)
  Receive Date: 20110324
  Receipt Date: 20110317
  Transmission Date: 20110831
  Serious: Yes (Death)
  Sender: FDA-Public Use
  Company Number: US-ROCHE-767007

PATIENT
  Age: 61 Year
  Sex: Female

DRUGS (3)
  1. DIAZEPAM [Suspect]
     Dosage: ONGOING STATUS UNKNOWN AT THE TIME OF DEATH
     Route: 048
  2. PARACETAMOL [Suspect]
     Dosage: ONGOING STATUS UNKNOWN AT THE TIME OF DEATH, ROUTE INGESTION
     Route: 048
  3. HYDROCODONE BITARTRATE [Suspect]
     Dosage: ONGOING STATUS UNKNOWN AT THE TIME OF DEATH, ROUTE INGESTION
     Route: 048

REACTIONS (1)
  - TOXICITY TO VARIOUS AGENTS [None]
